FAERS Safety Report 5332233-4 (Version None)
Quarter: 2007Q2

REPORT INFORMATION
  Report Type: 
  Country: None (occurrence: None)
  Receive Date: 20070306
  Receipt Date: 20060502
  Transmission Date: 20071010
  Serious: Yes (Hospitalization)
  Sender: FDA-Public Use
  Company Number: A03200602824

PATIENT
  Sex: Female

DRUGS (3)
  1. PLAVIX [Suspect]
     Dosage: ORAL
     Route: 048
  2. ACETYLSALICYLIC ACID SRT [Concomitant]
  3. PREDNISONE [Concomitant]

REACTIONS (3)
  - CONTUSION [None]
  - DYSPEPSIA [None]
  - GASTRIC DISORDER [None]
